FAERS Safety Report 11006878 (Version 1)
Quarter: 2015Q2

REPORT INFORMATION
  Report Type: Spontaneous
  Country: US (occurrence: US)
  Receive Date: 20150409
  Receipt Date: 20150409
  Transmission Date: 20150821
  Serious: No
  Sender: FDA-Public Use
  Company Number: US-ALLERGAN-1500230US

PATIENT
  Sex: Female

DRUGS (4)
  1. LATISSE [Suspect]
     Active Substance: BIMATOPROST
     Indication: GROWTH OF EYELASHES
     Dosage: UNK
     Route: 061
     Dates: start: 201411, end: 201412
  2. CLONAZEPAM. [Concomitant]
     Active Substance: CLONAZEPAM
     Indication: MUSCLE SPASMS
     Dosage: UNK
  3. AMOXICILLIN. [Concomitant]
     Active Substance: AMOXICILLIN
     Indication: SINUSITIS
  4. NADOLOL. [Concomitant]
     Active Substance: NADOLOL
     Indication: MITRAL VALVE PROLAPSE
     Dosage: UNK

REACTIONS (6)
  - Pruritus [Recovered/Resolved]
  - Rash erythematous [Recovered/Resolved]
  - Oral mucosal eruption [Unknown]
  - Periorbital oedema [Unknown]
  - Hypersensitivity [Unknown]
  - Throat irritation [Recovered/Resolved]
